FAERS Safety Report 4372791-X (Version None)
Quarter: 2004Q2

REPORT INFORMATION
  Report Type: 
  Country: None (occurrence: None)
  Receive Date: 20040602
  Receipt Date: 20040227
  Transmission Date: 20050107
  Serious: No
  Sender: FDA-Public Use
  Company Number: 200325409BWH

PATIENT
  Age: 57 Year
  Sex: Male
  Weight: 77.1115 kg

DRUGS (4)
  1. LEVITRA [Suspect]
     Dosage: 10 MG, QD, ORAL
     Route: 048
  2. TOPOROL [Concomitant]
  3. STIMULA RX [Concomitant]
  4. VIAGRA [Concomitant]

REACTIONS (2)
  - ERECTILE DYSFUNCTION [None]
  - ORGASM ABNORMAL [None]
